FAERS Safety Report 9565717 (Version 1)
Quarter: 2013Q3

REPORT INFORMATION
  Report Type: Spontaneous
  Country: US (occurrence: US)
  Receive Date: 20130930
  Receipt Date: 20130930
  Transmission Date: 20140515
  Serious: No
  Sender: FDA-Public Use
  Company Number: US-BAYER-2013-117379

PATIENT
  Age: 53 Year
  Sex: Female

DRUGS (1)
  1. FINACEA [Suspect]
     Indication: ROSACEA
     Dosage: UNK UNK, BID
     Dates: start: 201304, end: 2013

REACTIONS (3)
  - Application site pruritus [None]
  - Application site erythema [None]
  - Hyperaesthesia [None]
